FAERS Safety Report 20096331 (Version 2)
Quarter: 2022Q1

REPORT INFORMATION
  Report Type: Other
  Country: US (occurrence: US)
  Receive Date: 20211122
  Receipt Date: 20220119
  Transmission Date: 20220423
  Serious: Yes (Hospitalization, Other)
  Sender: FDA-Public Use
  Company Number: US-INTERCEPT-PM2021002889

PATIENT
  Age: 71 Year
  Sex: Female
  Weight: 79.365 kg

DRUGS (18)
  1. OCALIVA [Suspect]
     Active Substance: OBETICHOLIC ACID
     Indication: Primary biliary cholangitis
     Dosage: 5 MILLIGRAM, QD
     Route: 048
     Dates: start: 20200330, end: 202109
  2. URSO [Suspect]
     Active Substance: URSODIOL
     Indication: Primary biliary cholangitis
     Dosage: 500 MILLIGRAM, BID
     Dates: start: 2019
  3. URSO [Suspect]
     Active Substance: URSODIOL
     Dosage: 500 MILLIGRAM, QD
  4. URSO [Suspect]
     Active Substance: URSODIOL
     Dosage: 300 MILLIGRAM, TID
     Route: 048
     Dates: start: 202109
  5. PREDNISONE [Suspect]
     Active Substance: PREDNISONE
     Indication: Pulmonary fibrosis
     Dosage: 30 MILLIGRAM, QD
     Route: 048
     Dates: start: 202106
  6. PREDNISONE [Suspect]
     Active Substance: PREDNISONE
     Dosage: 40 MILLIGRAM, QD
     Route: 048
  7. PREDNISONE [Suspect]
     Active Substance: PREDNISONE
     Dosage: 20 MILLIGRAM, QD
     Route: 048
  8. PREDNISONE [Suspect]
     Active Substance: PREDNISONE
     Dosage: 10 MILLIGRAM, QD
     Route: 048
  9. ATIVAN [Suspect]
     Active Substance: LORAZEPAM
     Indication: Insomnia
     Dosage: 0.5 MILLIGRAM, QHS
  10. ATIVAN [Suspect]
     Active Substance: LORAZEPAM
     Dosage: 1 MILLIGRAM, QHS
  11. VITAMIN D3 [Concomitant]
     Active Substance: CHOLECALCIFEROL
     Dosage: UNK
     Route: 048
  12. VITAMIN D3 [Concomitant]
     Active Substance: CHOLECALCIFEROL
     Dosage: 5000 INTERNATIONAL UNIT, QD
     Route: 048
  13. VITAMIN D3 [Concomitant]
     Active Substance: CHOLECALCIFEROL
     Dosage: 2000 INTERNATIONAL UNIT, QD
     Route: 048
  14. AZELASTINE HYDROCHLORIDE [Concomitant]
     Active Substance: AZELASTINE HYDROCHLORIDE
     Dosage: 137 MICROGRAM, PRN) 2 SPRAYS EACH NARE 2 TIMES DAILY PRN
     Route: 045
  15. SYNTHROID [Concomitant]
     Active Substance: LEVOTHYROXINE SODIUM
     Indication: Hypothyroidism
     Dosage: 88 MICROGRAM, QD
     Route: 048
  16. VITAMIN B12 [HYDROXOCOBALAMIN ACETATE] [Concomitant]
     Dosage: 1000 MICROGRAM EVERY 30 DAYS
     Route: 030
  17. METAMUCIL [Concomitant]
     Active Substance: PLANTAGO SEED
     Dosage: UNK
  18. PRAVACHOL [Concomitant]
     Active Substance: PRAVASTATIN SODIUM
     Dosage: 10 MILLIGRAM, QHS
     Route: 048

REACTIONS (23)
  - Interstitial lung disease [Unknown]
  - Thoracic operation [Unknown]
  - Pulmonary fibrosis [Unknown]
  - Hepatic cirrhosis [Unknown]
  - Primary biliary cholangitis [Unknown]
  - Splenomegaly [Unknown]
  - Pulmonary granuloma [Unknown]
  - Reflux laryngitis [Unknown]
  - Hepatic cyst [Unknown]
  - Renal cyst [Unknown]
  - Insomnia [Unknown]
  - Palmar erythema [Unknown]
  - Oedema [Unknown]
  - Diarrhoea [Unknown]
  - Nausea [Unknown]
  - Burning sensation [Unknown]
  - Aspartate aminotransferase increased [Recovering/Resolving]
  - Alanine aminotransferase increased [Recovering/Resolving]
  - Blood bilirubin increased [Recovering/Resolving]
  - Blood alkaline phosphatase increased [Recovering/Resolving]
  - Fatigue [Unknown]
  - Pruritus [Recovering/Resolving]
  - Rash maculo-papular [Unknown]

NARRATIVE: CASE EVENT DATE: 20200901
